FAERS Safety Report 11765177 (Version 1)
Quarter: 2015Q4

REPORT INFORMATION
  Report Type: Spontaneous
  Country: US (occurrence: US)
  Receive Date: 20151120
  Receipt Date: 20151120
  Transmission Date: 20160304
  Serious: No
  Sender: FDA-Public Use
  Company Number: US-ELI_LILLY_AND_COMPANY-US201312005738

PATIENT
  Sex: Female
  Weight: 40.82 kg

DRUGS (4)
  1. METHADONE [Concomitant]
     Active Substance: METHADONE HYDROCHLORIDE
     Dosage: 120 MG, QD
  2. FORTEO [Suspect]
     Active Substance: TERIPARATIDE
     Indication: OSTEOPOROSIS
     Dosage: UNK, QOD
     Dates: start: 201308, end: 201309
  3. METHADONE [Concomitant]
     Active Substance: METHADONE HYDROCHLORIDE
     Dosage: 110 MG, QD
  4. BACLOFEN. [Concomitant]
     Active Substance: BACLOFEN
     Dosage: 10 MG, TID

REACTIONS (5)
  - Device failure [Unknown]
  - Dental discomfort [Unknown]
  - Drug prescribing error [Unknown]
  - Swelling face [Unknown]
  - Alopecia [Unknown]
